FAERS Safety Report 7450037-3 (Version None)
Quarter: 2011Q2

REPORT INFORMATION
  Report Type: 
  Country: None (occurrence: None)
  Receive Date: 20110502
  Receipt Date: 20091122
  Transmission Date: 20111010
  Serious: Yes (Death, Other)
  Sender: FDA-Public Use
  Company Number: US-BAYER-201039448NA

PATIENT
  Age: 73 Year
  Sex: Female
  Weight: 76.19 kg

DRUGS (33)
  1. DIGOXIN [Concomitant]
     Dosage: 125 ?G, UNK
     Route: 048
  2. EPINEPHRINE [Concomitant]
     Dosage: UNK
     Route: 042
     Dates: start: 20070331, end: 20070331
  3. ANCEF [Concomitant]
     Dosage: 1 G, UNK
     Route: 042
     Dates: start: 20070331, end: 20070331
  4. NATRECOR [Concomitant]
     Dosage: DRIP
     Route: 042
     Dates: start: 20070331
  5. TRASYLOL [Suspect]
     Indication: CORONARY ARTERY BYPASS
     Dosage: 200 ML, UNK
     Dates: start: 20070331
  6. WARFARIN [Concomitant]
     Dosage: UNK
     Route: 048
     Dates: start: 19940101
  7. TORSEMIDE [Concomitant]
     Dosage: 20 MG, UNK
     Route: 048
     Dates: start: 19940101
  8. CLONIDINE [Concomitant]
     Dosage: 0.2 MG, UNK
     Route: 048
     Dates: start: 19940101
  9. LASIX [Concomitant]
     Dosage: 20 MG, UNK
     Route: 042
  10. IOPHEN-C [Concomitant]
     Dosage: 1-2 TABLE SPOONS
     Route: 048
  11. TRASYLOL [Suspect]
     Indication: MITRAL VALVE REPAIR
     Dosage: 1ML
     Route: 042
     Dates: start: 20070331, end: 20070331
  12. ENALAPRIL MALEATE [Concomitant]
     Dosage: UNK
     Route: 048
     Dates: start: 19940101
  13. NORVASC [Concomitant]
     Dosage: 5 MG, UNK
     Route: 048
     Dates: start: 19940101
  14. DOPAMINE HCL [Concomitant]
     Dosage: PRE-OPERATIVE MEDICATION
     Route: 042
     Dates: start: 20070331
  15. PROTAMINE SULFATE [Concomitant]
     Dosage: 100 MG, UNK
     Route: 042
     Dates: start: 20070331, end: 20070331
  16. ANCEF [Concomitant]
     Dosage: 1 G, UNK
     Route: 042
     Dates: start: 20070331, end: 20070331
  17. DOBUTAMINE HYDROCHLORIDE [Concomitant]
     Dosage: UNK
     Route: 042
     Dates: start: 20070331
  18. TORSEMIDE [Concomitant]
     Dosage: 20 MG, UNK
  19. AMOXICILLIN [Concomitant]
     Dosage: 875 MG, UNK
  20. VERSED [Concomitant]
     Dosage: 37 MG, UNK
     Route: 042
     Dates: start: 20070331
  21. INSULIN [INSULIN] [Concomitant]
     Dosage: UNK
     Dates: start: 20070331, end: 20070331
  22. FORANE [Concomitant]
     Dosage: 1
     Route: 042
     Dates: start: 20070331, end: 20070331
  23. LIDOCAINE [Concomitant]
     Dosage: 100 MG, UNK
     Route: 042
     Dates: start: 20070331, end: 20070331
  24. PRIMACOR [Concomitant]
     Dosage: UNK
     Route: 042
     Dates: start: 20070407
  25. ATIVAN [Concomitant]
     Dosage: 2 MG, UNK
     Route: 042
  26. TRASYLOL [Suspect]
     Dosage: 50ML/HR, INFUSION
     Dates: start: 20070331
  27. METOPROLOL SUCCINATE [Concomitant]
     Dosage: 50 MG, UNK
     Route: 048
     Dates: start: 19940101
  28. ISOPROTERENOL HCL [Concomitant]
     Dosage: 1 MG, UNK
     Route: 042
     Dates: start: 20070331, end: 20070331
  29. PAVULON [Concomitant]
     Dosage: 10 MG, UNK
     Route: 042
  30. HEPARIN [Concomitant]
     Dosage: 30000 U, UNK
     Route: 042
     Dates: start: 20070331, end: 20070331
  31. VANCOMYCIN [Concomitant]
     Dosage: 1 G, UNK
     Route: 042
     Dates: start: 20070331, end: 20070331
  32. AMIODARONE [Concomitant]
     Dosage: DRIP
     Route: 042
     Dates: start: 20070331
  33. PRIMACOR [Concomitant]
     Dosage: UNK
     Route: 042
     Dates: start: 20070331

REACTIONS (13)
  - RENAL FAILURE CHRONIC [None]
  - MULTI-ORGAN FAILURE [None]
  - RENAL IMPAIRMENT [None]
  - RENAL INJURY [None]
  - UNEVALUABLE EVENT [None]
  - MENTAL DISORDER [None]
  - EMOTIONAL DISTRESS [None]
  - STRESS [None]
  - INJURY [None]
  - ANXIETY [None]
  - RENAL FAILURE [None]
  - FEAR [None]
  - PAIN [None]
